FAERS Safety Report 5484079-4 (Version None)
Quarter: 2007Q4

REPORT INFORMATION
  Report Type: 
  Country: None (occurrence: None)
  Receive Date: 20071012
  Receipt Date: 20071003
  Transmission Date: 20080405
  Serious: Yes (Other)
  Sender: FDA-Public Use
  Company Number: PHBS2007JP16109

PATIENT
  Age: 29 Year
  Sex: Male

DRUGS (2)
  1. NEORAL [Suspect]
     Indication: BONE MARROW TRANSPLANT
     Dosage: 200 MG/DAY
     Route: 048
     Dates: start: 20031101
  2. ENDOXAN [Concomitant]
     Indication: BONE MARROW TRANSPLANT

REACTIONS (7)
  - GLOMERULONEPHRITIS MEMBRANOUS [None]
  - HAEMATURIA [None]
  - PLATELET COUNT DECREASED [None]
  - PROTEINURIA [None]
  - RENAL VESSEL DISORDER [None]
  - URINE ABNORMALITY [None]
  - WHITE BLOOD CELL COUNT DECREASED [None]
